FAERS Safety Report 7817103-1 (Version None)
Quarter: 2011Q4

REPORT INFORMATION
  Report Type: 
  Country: None (occurrence: None)
  Receive Date: 20111017
  Receipt Date: 20111006
  Transmission Date: 20120403
  Serious: Yes (Other)
  Sender: FDA-Public Use
  Company Number: JP-PFIZER INC-2011244538

PATIENT
  Age: 46 Year
  Sex: Male

DRUGS (19)
  1. TASMOLIN [Concomitant]
  2. DEPAS [Concomitant]
  3. ALPRAZOLAM [Suspect]
  4. CHLORPROMAZINE HCL [Suspect]
  5. BLONANSERIN [Suspect]
     Dosage: 24 MG, UNK
     Route: 048
  6. CHLORPROMAZINE HCL [Suspect]
     Indication: SCHIZOPHRENIA
  7. BROMAZEPAM [Suspect]
     Indication: SCHIZOPHRENIA
  8. FLUNITRAZEPAM [Suspect]
     Indication: SCHIZOPHRENIA
     Dosage: 4 MG, UNK
  9. BLONANSERIN [Suspect]
     Indication: SCHIZOPHRENIA
     Dosage: 16 MG, UNK
     Route: 048
  10. LITHIUM CARBONATE [Suspect]
     Indication: SCHIZOPHRENIA
  11. DIAZEPAM [Suspect]
     Indication: SCHIZOPHRENIA
  12. TOPIRAMATE [Suspect]
     Indication: SCHIZOPHRENIA
     Dosage: 100 MG, UNK
  13. TOPIRAMATE [Suspect]
     Dosage: 200 MG, UNK
  14. CLOTIAZEPAM [Suspect]
     Indication: SCHIZOPHRENIA
  15. FLUVOXAMINE MALEATE [Suspect]
     Indication: SCHIZOPHRENIA
  16. PROMETHAZINE HCL [Concomitant]
  17. TEGRETOL [Suspect]
     Indication: SCHIZOPHRENIA
     Route: 048
  18. SULPIRIDE [Suspect]
     Indication: SCHIZOPHRENIA
  19. PHENOBARBITAL TAB [Suspect]
     Indication: SCHIZOPHRENIA

REACTIONS (1)
  - NEUROLEPTIC MALIGNANT SYNDROME [None]
